FAERS Safety Report 21445661 (Version 4)
Quarter: 2024Q1

REPORT INFORMATION
  Report Type: Report from Study
  Country: US (occurrence: US)
  Receive Date: 20221012
  Receipt Date: 20240314
  Transmission Date: 20240409
  Serious: Yes (Hospitalization)
  Sender: FDA-Public Use
  Company Number: US-ARGENX-2022-ARGX-US001979

PATIENT

DRUGS (2)
  1. VYVGART [Suspect]
     Active Substance: EFGARTIGIMOD ALFA-FCAB
     Indication: Product used for unknown indication
     Dosage: UNK
     Route: 042
  2. ZETIA [Concomitant]
     Active Substance: EZETIMIBE
     Indication: Drug therapy
     Dosage: UNK
     Route: 065

REACTIONS (11)
  - Central venous catheter removal [Unknown]
  - SARS-CoV-2 test positive [Unknown]
  - Migraine [Unknown]
  - Malaise [Unknown]
  - Fall [Unknown]
  - Limb injury [Unknown]
  - Joint injury [Unknown]
  - Dyspnoea [Unknown]
  - Myalgia [Unknown]
  - Myasthenia gravis [Unknown]
  - Sensitivity to weather change [Unknown]

NARRATIVE: CASE EVENT DATE: 20221005
